FAERS Safety Report 5641351-2 (Version None)
Quarter: 2008Q1

REPORT INFORMATION
  Report Type: 
  Country: None (occurrence: None)
  Receive Date: 20080227
  Receipt Date: 20070621
  Transmission Date: 20080703
  Serious: No
  Sender: FDA-Public Use
  Company Number: A0658821A

PATIENT
  Age: 53 Year
  Sex: Female

DRUGS (2)
  1. NICOTINE [Suspect]
     Dates: start: 20070617, end: 20070619
  2. NICORETTE (MINT) [Suspect]

REACTIONS (4)
  - GINGIVAL PAIN [None]
  - GINGIVAL SWELLING [None]
  - PHARMACEUTICAL PRODUCT COMPLAINT [None]
  - TOOTHACHE [None]
